FAERS Safety Report 9614231 (Version 1)
Quarter: 2013Q4

REPORT INFORMATION
  Report Type: Spontaneous
  Country: LV (occurrence: LV)
  Receive Date: 20131011
  Receipt Date: 20131011
  Transmission Date: 20140711
  Serious: Yes (Other)
  Sender: FDA-Public Use
  Company Number: LV-ASTRAZENECA-2013SE73988

PATIENT
  Sex: Male

DRUGS (3)
  1. BRILIQUE [Suspect]
     Route: 048
  2. BRILIQUE [Suspect]
     Dosage: TICAGRELOR
     Route: 048
  3. ASPIRIN [Concomitant]

REACTIONS (1)
  - Thrombosis in device [Recovered/Resolved]
